FAERS Safety Report 14755611 (Version 2)
Quarter: 2018Q2

REPORT INFORMATION
  Report Type: Spontaneous
  Country: US (occurrence: US)
  Receive Date: 20180413
  Receipt Date: 20180501
  Transmission Date: 20180711
  Serious: Yes (Other)
  Sender: FDA-Public Use
  Company Number: US-BRISTOL-MYERS SQUIBB COMPANY-BMS-2018-034378

PATIENT
  Sex: Female
  Weight: 83.91 kg

DRUGS (1)
  1. COUMADIN [Suspect]
     Active Substance: WARFARIN SODIUM
     Indication: ATRIAL FIBRILLATION
     Dosage: 1 DF, UNK
     Route: 065

REACTIONS (7)
  - Drug ineffective [Unknown]
  - Thrombosis [Unknown]
  - Ecchymosis [Unknown]
  - Contusion [Unknown]
  - Asthenia [Unknown]
  - Cardiac disorder [Unknown]
  - Auditory disorder [Unknown]
